FAERS Safety Report 22094250 (Version 2)
Quarter: 2023Q2

REPORT INFORMATION
  Report Type: Spontaneous
  Country: US (occurrence: US)
  Receive Date: 20230314
  Receipt Date: 20230517
  Transmission Date: 20230721
  Serious: No
  Sender: FDA-Public Use
  Company Number: US-BRISTOL-MYERS SQUIBB COMPANY-2023-037055

PATIENT
  Age: 48 Year
  Sex: Female
  Weight: 83.01 kg

DRUGS (2)
  1. REVLIMID [Suspect]
     Active Substance: LENALIDOMIDE
     Indication: Plasma cell myeloma
     Dosage: D1-21 Q28 DAYS
     Route: 048
     Dates: start: 20221129
  2. REVLIMID [Suspect]
     Active Substance: LENALIDOMIDE
     Route: 048
     Dates: start: 20221129

REACTIONS (2)
  - Decreased appetite [Not Recovered/Not Resolved]
  - Dyspepsia [Recovered/Resolved]
